FAERS Safety Report 7442672-3 (Version None)
Quarter: 2011Q2

REPORT INFORMATION
  Report Type: 
  Country: None (occurrence: None)
  Receive Date: 20110428
  Receipt Date: 20110415
  Transmission Date: 20111010
  Serious: Yes (Hospitalization)
  Sender: FDA-Public Use
  Company Number: CA-JNJFOC-20110407820

PATIENT
  Sex: Male
  Weight: 77.8 kg

DRUGS (11)
  1. REMICADE [Suspect]
     Indication: RHEUMATOID ARTHRITIS
     Route: 042
  2. FUROSEMIDE [Concomitant]
     Route: 065
  3. NOVO-SPIROTON [Concomitant]
     Route: 065
  4. SULFASALAZINE [Concomitant]
     Route: 065
  5. BACLOFEN [Concomitant]
     Route: 065
  6. DIDROCAL [Concomitant]
     Route: 065
  7. CLONAZEPAM [Concomitant]
     Route: 065
  8. LIPITOR [Concomitant]
     Route: 065
  9. RAMIPRIL [Concomitant]
     Route: 065
  10. PRILOSEC [Concomitant]
     Route: 065
  11. PREDNISONE [Concomitant]
     Route: 065

REACTIONS (5)
  - LOCALISED INFECTION [None]
  - STAPHYLOCOCCAL INFECTION [None]
  - ABASIA [None]
  - HIP ARTHROPLASTY [None]
  - LUNG INFECTION [None]
